FAERS Safety Report 7702323-7 (Version None)
Quarter: 2011Q3

REPORT INFORMATION
  Report Type: 
  Country: None (occurrence: None)
  Receive Date: 20110822
  Receipt Date: 20110818
  Transmission Date: 20111222
  Serious: Yes (Life-Threatening)
  Sender: FDA-Public Use
  Company Number: PHHY2011GB56159

PATIENT
  Age: 74 Year
  Sex: Female

DRUGS (12)
  1. CANDESARTAN CILEXETIL [Concomitant]
  2. DOXAZOSIN MESYLATE [Concomitant]
  3. DOCUSATE SODIUM [Concomitant]
  4. ZOPICLONE [Concomitant]
  5. FENTANYL [Suspect]
     Indication: PAIN
     Dosage: 87 MCG
  6. DEXAMETHASONE [Concomitant]
  7. AMITRIPTYLINE HCL [Concomitant]
  8. SEVELAMER [Concomitant]
  9. TAMOXIFEN CITRATE [Concomitant]
  10. CLARITHROMYCIN [Suspect]
     Indication: RESPIRATORY TRACT INFECTION
     Dosage: 500 MG, BID
     Route: 048
     Dates: start: 20110608, end: 20110613
  11. IBUPROFEN [Concomitant]
  12. ACETAMINOPHEN [Concomitant]

REACTIONS (4)
  - RESPIRATORY FAILURE [None]
  - DRUG INTERACTION [None]
  - RESPIRATORY ARREST [None]
  - SOMNOLENCE [None]
